FAERS Safety Report 6505802-3 (Version None)
Quarter: 2009Q4

REPORT INFORMATION
  Report Type: 
  Country: None (occurrence: None)
  Receive Date: 20091217
  Receipt Date: 20091217
  Transmission Date: 20100525
  Serious: No
  Sender: FDA-Public Use
  Company Number: None

PATIENT
  Age: 3 Year
  Sex: Female
  Weight: 15.8759 kg

DRUGS (2)
  1. SINGULAIR [Suspect]
     Indication: HYPERSENSITIVITY
     Dosage: 4MG DAILY PO
     Route: 048
     Dates: start: 20090501, end: 20091215
  2. SINGULAIR [Suspect]
     Indication: WHEEZING
     Dosage: 4MG DAILY PO
     Route: 048
     Dates: start: 20090501, end: 20091215

REACTIONS (10)
  - ABNORMAL BEHAVIOUR [None]
  - ABNORMAL DREAMS [None]
  - ANGER [None]
  - CRYING [None]
  - FATIGUE [None]
  - FORMICATION [None]
  - HYPOPHAGIA [None]
  - MOOD SWINGS [None]
  - SCREAMING [None]
  - SLEEP DISORDER [None]
